FAERS Safety Report 15010271 (Version 1)
Quarter: 2018Q2

REPORT INFORMATION
  Report Type: Spontaneous
  Country: US (occurrence: US)
  Receive Date: 20180614
  Receipt Date: 20180614
  Transmission Date: 20180711
  Serious: No
  Sender: FDA-Public Use
  Company Number: US-BAYER-2018-107462

PATIENT
  Age: 55 Year
  Sex: Female
  Weight: 76.96 kg

DRUGS (1)
  1. CLARITIN [Suspect]
     Active Substance: LORATADINE

REACTIONS (3)
  - Product package associated injury [Unknown]
  - Product packaging issue [None]
  - Wrong technique in product usage process [None]
